FAERS Safety Report 4421928-2 (Version None)
Quarter: 2004Q3

REPORT INFORMATION
  Report Type: 
  Country: None (occurrence: None)
  Receive Date: 20040805
  Receipt Date: 20010813
  Transmission Date: 20050211
  Serious: Yes (Hospitalization)
  Sender: FDA-Public Use
  Company Number: 2001-08-0037

PATIENT
  Age: 75 Year
  Sex: Female

DRUGS (4)
  1. THALOMID [Suspect]
     Indication: MYELODYSPLASTIC SYNDROME
     Dosage: DAY, ORAL
     Route: 048
     Dates: start: 20010409, end: 20010601
  2. TRENTAL [Suspect]
     Indication: MYELODYSPLASTIC SYNDROME
     Dosage: DAY, ORAL
     Route: 048
     Dates: start: 20010409, end: 20010601
  3. DESFERAL (DEFEROXAMINE MESILATE) [Concomitant]
  4. VITAMIN B6 [Concomitant]

REACTIONS (14)
  - ABDOMINAL PAIN [None]
  - ASTHENIA [None]
  - ATRIAL FIBRILLATION [None]
  - AZOTAEMIA [None]
  - DIARRHOEA [None]
  - ESCHERICHIA INFECTION [None]
  - HYDRONEPHROSIS [None]
  - HYPOKALAEMIA [None]
  - HYPOTENSION [None]
  - ILEUS [None]
  - LETHARGY [None]
  - MASS [None]
  - UROSEPSIS [None]
  - VOMITING [None]
